FAERS Safety Report 6404780-5 (Version None)
Quarter: 2009Q4

REPORT INFORMATION
  Report Type: 
  Country: None (occurrence: None)
  Receive Date: 20091016
  Receipt Date: 20091006
  Transmission Date: 20100525
  Serious: Yes (Hospitalization)
  Sender: FDA-Public Use
  Company Number: PHHY2009JP33685

PATIENT
  Age: 63 Year
  Sex: Male

DRUGS (5)
  1. TEGRETOL [Suspect]
     Indication: EPILEPSY
     Dosage: 400 MG/DAY
     Route: 048
     Dates: start: 20090501
  2. FOIPAN [Concomitant]
     Dosage: UNK
     Route: 048
     Dates: start: 20090319
  3. CLINDAMYCIN [Concomitant]
     Dosage: 1.8 MG
     Route: 042
     Dates: start: 20090721, end: 20090816
  4. MEROPEN [Concomitant]
     Dosage: 1.5 G
     Route: 042
     Dates: start: 20090721, end: 20090805
  5. ROCEPHIN [Concomitant]
     Dosage: UNK
     Route: 042
     Dates: start: 20090806, end: 20090816

REACTIONS (2)
  - PNEUMONIA ASPIRATION [None]
  - TONGUE DISCOLOURATION [None]
